FAERS Safety Report 6088835-3 (Version None)
Quarter: 2009Q1

REPORT INFORMATION
  Report Type: 
  Country: None (occurrence: None)
  Receive Date: 20090224
  Receipt Date: 20090213
  Transmission Date: 20090719
  Serious: Yes (Hospitalization, Other)
  Sender: FDA-Public Use
  Company Number: US-JNJFOC-20090203914

PATIENT
  Age: 30 Year
  Sex: Male

DRUGS (4)
  1. REMICADE [Suspect]
     Indication: CROHN'S DISEASE
     Dosage: THE PATIENT RECEIVED 4 DOSES SEVERAL YEARS AGO.
     Route: 042
  2. HUMIRA [Suspect]
     Indication: CROHN'S DISEASE
     Route: 065
  3. AZA [Concomitant]
     Dosage: FOR 11 YEARS
  4. MERCAPTOPURINE [Concomitant]
     Dosage: FOR 11 YEARS

REACTIONS (2)
  - B-CELL LYMPHOMA [None]
  - CONDITION AGGRAVATED [None]
